FAERS Safety Report 9678745 (Version 1)
Quarter: 2013Q4

REPORT INFORMATION
  Report Type: Spontaneous
  Country: DE (occurrence: DE)
  Receive Date: 20131108
  Receipt Date: 20131108
  Transmission Date: 20140711
  Serious: Yes (Hospitalization)
  Sender: FDA-Public Use
  Company Number: DE-TEVA-441739GER

PATIENT
  Age: 21 Year
  Sex: Female

DRUGS (6)
  1. OLANZAPINE [Suspect]
     Indication: SCHIZOPHRENIA, PARANOID TYPE
     Dosage: 15 MILLIGRAM DAILY;
     Route: 048
  2. ATOSIL [Concomitant]
     Indication: RESTLESSNESS
     Dosage: 0-0-1/2-1
     Route: 048
  3. MIRTAZAPIN [Concomitant]
     Dosage: 15 MILLIGRAM DAILY; 0-0-0-1
     Route: 048
  4. PANTOPRAZOL [Concomitant]
     Indication: NAUSEA
     Dosage: 40 MILLIGRAM DAILY;
     Route: 048
  5. METOPROLOL [Concomitant]
     Indication: HYPERTENSION
     Dosage: 23.75 MILLIGRAM DAILY;
     Route: 048
  6. MAXIM [Concomitant]
     Indication: CONTRACEPTION
     Route: 048

REACTIONS (1)
  - Breast discharge [Not Recovered/Not Resolved]
